FAERS Safety Report 20822408 (Version 2)
Quarter: 2022Q2

REPORT INFORMATION
  Report Type: Spontaneous
  Country: FR (occurrence: FR)
  Receive Date: 20220512
  Receipt Date: 20220601
  Transmission Date: 20220721
  Serious: Yes (Death, Other)
  Sender: FDA-Public Use
  Company Number: FR-TEVA-2022-FR-2035694

PATIENT
  Age: 40 Year
  Sex: Female

DRUGS (25)
  1. METHOTREXATE [Suspect]
     Active Substance: METHOTREXATE
     Indication: Lymphoma
     Dosage: SECOND LINE THERAPY
     Route: 037
     Dates: end: 201808
  2. VINCRISTINE [Suspect]
     Active Substance: VINCRISTINE
     Indication: Lymphoma
     Dosage: SECOND LINE THERAPY
     Route: 065
     Dates: end: 201808
  3. CARBOPLATIN [Suspect]
     Active Substance: CARBOPLATIN
     Indication: Lymphoma
     Dosage: THIRD-LINE CHEMOTHERAPY
     Route: 065
     Dates: start: 201902
  4. PREDNISOLONE [Suspect]
     Active Substance: PREDNISOLONE
     Indication: Lymphoma
     Dosage: SECOND LINE CHEMOTHERAPY
     Route: 065
     Dates: end: 201808
  5. VORICONAZOLE [Suspect]
     Active Substance: VORICONAZOLE
     Indication: Aspergillus infection
     Route: 065
  6. DOXORUBICIN [Suspect]
     Active Substance: DOXORUBICIN
     Indication: Lymphoma
     Dosage: SECOND LINE THERAPY
     Route: 065
     Dates: end: 201808
  7. ETOPOSIDE [Suspect]
     Active Substance: ETOPOSIDE
     Indication: Lymphoma
     Dosage: THIRD-LINE CHEMOTHERAPY
     Route: 065
     Dates: start: 201902
  8. ETOPOSIDE [Suspect]
     Active Substance: ETOPOSIDE
     Dosage: RECEIVED AFTER AUTOLOGOUS STEM CELL TRANSPLANTATION
     Route: 065
     Dates: start: 2019
  9. RITUXIMAB [Suspect]
     Active Substance: RITUXIMAB
     Indication: Lymphoma
     Dosage: INFUSION; FIRST LINE THERAPY ; FOR 4 WEEKS
     Route: 065
     Dates: start: 201802
  10. RITUXIMAB [Suspect]
     Active Substance: RITUXIMAB
     Dosage: SECOND LINE THERAPY
     Route: 065
     Dates: end: 201808
  11. RITUXIMAB [Suspect]
     Active Substance: RITUXIMAB
     Dosage: THIRD-LINE CHEMOTHERAPY
     Route: 065
     Dates: start: 201902
  12. RITUXIMAB [Suspect]
     Active Substance: RITUXIMAB
     Dosage: BRIDGING CHEMOTHERAPY
     Route: 065
     Dates: start: 201906
  13. CYTARABINE [Suspect]
     Active Substance: CYTARABINE
     Indication: Lymphoma
     Dosage: SECOND LINE THERAPY
     Route: 065
     Dates: end: 201808
  14. CYTARABINE [Suspect]
     Active Substance: CYTARABINE
     Dosage: RECEIVED AFTER AUTOLOGOUS STEM CELL TRANSPLANTATION
     Route: 065
     Dates: start: 2019
  15. CYCLOPHOSPHAMIDE [Suspect]
     Active Substance: CYCLOPHOSPHAMIDE
     Indication: Lymphoma
     Dosage: SECOND LINE THERAPY
     Route: 065
     Dates: end: 201808
  16. CYCLOPHOSPHAMIDE [Suspect]
     Active Substance: CYCLOPHOSPHAMIDE
     Dosage: LYMPHODEPLETIVE CONDITIONING
     Route: 065
     Dates: start: 201906
  17. IFOSFAMIDE [Suspect]
     Active Substance: IFOSFAMIDE
     Indication: Lymphoma
     Dosage: THIRD-LINE CHEMOTHERAPY
     Route: 065
     Dates: start: 201902
  18. CARMUSTINE [Suspect]
     Active Substance: CARMUSTINE
     Indication: Lymphoma
     Dosage: RECEIVED AFTER AUTOLOGOUS STEM CELL TRANSPLANTATION
     Route: 065
     Dates: start: 2019
  19. MELPHALAN [Suspect]
     Active Substance: MELPHALAN
     Indication: Lymphoma
     Dosage: RECEIVED AFTER AUTOLOGOUS STEM CELL TRANSPLANTATION
     Route: 065
     Dates: start: 2019
  20. KYMRIAH [Suspect]
     Active Substance: TISAGENLECLEUCEL
     Indication: Lymphoma
     Dosage: INFUSION
     Route: 065
     Dates: start: 201907
  21. TACROLIMUS [Concomitant]
     Active Substance: TACROLIMUS
     Indication: Immunosuppressant drug therapy
     Dosage: 16 MILLIGRAM DAILY; TROUGH LEVEL 5.4 NG/ML
     Route: 065
  22. PREDNISONE [Concomitant]
     Active Substance: PREDNISONE
     Indication: Immunosuppressant drug therapy
     Dosage: 20 MILLIGRAM DAILY;
     Route: 065
  23. PREDNISONE [Concomitant]
     Active Substance: PREDNISONE
     Dosage: 20 MILLIGRAM DAILY;
     Route: 065
     Dates: start: 2019
  24. DEXAMETHASONE [Concomitant]
     Active Substance: DEXAMETHASONE
     Indication: Immunosuppressant drug therapy
     Dosage: BRIDGING CHEMOTHERAPY
     Route: 065
     Dates: start: 201906
  25. FLUDARABINE [Concomitant]
     Active Substance: FLUDARABINE PHOSPHATE
     Indication: Lymphoma
     Dosage: LYMPHODEPLETIVE CONDITIONING
     Route: 065
     Dates: start: 201906

REACTIONS (5)
  - Drug ineffective [Fatal]
  - Kidney transplant rejection [Recovering/Resolving]
  - Cytokine release syndrome [Unknown]
  - Pancytopenia [Unknown]
  - Acute kidney injury [Unknown]
